FAERS Safety Report 8570810-8 (Version None)
Quarter: 2012Q3

REPORT INFORMATION
  Report Type: 
  Country: None (occurrence: None)
  Receive Date: 20120806
  Receipt Date: 20120719
  Transmission Date: 20120928
  Serious: No
  Sender: FDA-Public Use
  Company Number: US-009507513-2012SP026592

PATIENT

DRUGS (9)
  1. RITUXAN [Concomitant]
     Dosage: 100 MG, UNK
  2. CITALOPRAM HYDROBROMIDE [Concomitant]
     Dosage: 10 MG, UNK
     Route: 065
  3. VITAMINS (UNSPECIFIED) [Concomitant]
     Dosage: UPDATE (21JUN2012)
     Route: 065
  4. NEUPOGEN [Concomitant]
  5. PROCRIT [Concomitant]
     Dosage: 3000 ML, UNK
  6. VICTRELIS [Suspect]
     Indication: HEPATITIS C
     Dosage: 800 MG, TID
     Route: 048
  7. REBETOL [Suspect]
     Indication: HEPATITIS C
     Dosage: 200 MG, UNK
     Route: 065
  8. PEGASYS [Suspect]
     Indication: HEPATITIS C
     Dosage: UNK
  9. LISINOPRIL [Concomitant]
     Dosage: 10 MG, UNK
     Route: 065

REACTIONS (13)
  - FATIGUE [None]
  - WHITE BLOOD CELL COUNT DECREASED [None]
  - PLATELET COUNT DECREASED [None]
  - RED BLOOD CELL COUNT DECREASED [None]
  - WEIGHT DECREASED [None]
  - DIARRHOEA [None]
  - RASH [None]
  - CHILLS [None]
  - HYPERHIDROSIS [None]
  - PYREXIA [None]
  - ANAEMIA [None]
  - ABDOMINAL PAIN [None]
  - ORAL HERPES [None]
